FAERS Safety Report 7323380-6 (Version None)
Quarter: 2011Q1

REPORT INFORMATION
  Report Type: 
  Country: None (occurrence: None)
  Receive Date: 20110301
  Receipt Date: 20110218
  Transmission Date: 20110831
  Serious: Yes (Other)
  Sender: FDA-Public Use
  Company Number: FR-JNJFOC-20110205811

PATIENT
  Age: 34 Year
  Sex: Female
  Weight: 35 kg

DRUGS (3)
  1. REMICADE [Suspect]
     Route: 042
  2. REMICADE [Suspect]
     Route: 042
  3. REMICADE [Suspect]
     Indication: CROHN'S DISEASE
     Route: 042

REACTIONS (4)
  - INFUSION RELATED REACTION [None]
  - WRONG TECHNIQUE IN DRUG USAGE PROCESS [None]
  - CHEST DISCOMFORT [None]
  - ERYTHEMA [None]
